FAERS Safety Report 7472266-5 (Version None)
Quarter: 2011Q2

REPORT INFORMATION
  Report Type: 
  Country: None (occurrence: None)
  Receive Date: 20110502
  Receipt Date: 20110415
  Transmission Date: 20111010
  Serious: Yes (Life-Threatening, Hospitalization, Other)
  Sender: FDA-Public Use
  Company Number: AUR-APL-2011-00723

PATIENT
  Age: 61 Year
  Sex: Female

DRUGS (4)
  1. PERIOSTAT [Concomitant]
  2. GABAPENTIN [Suspect]
     Indication: MUSCULOSKELETAL PAIN
     Dosage: 100MG, BID, ORAL
     Route: 048
     Dates: start: 20101215, end: 20110318
  3. ACETAMINOPHEN [Concomitant]
  4. GABAPENTIN [Suspect]
     Indication: MUSCULOSKELETAL PAIN
     Dosage: 200MG, QHS, ORAL
     Route: 048
     Dates: start: 20101215, end: 20110318

REACTIONS (3)
  - PALPITATIONS [None]
  - MYOCARDIAL INFARCTION [None]
  - ABDOMINAL PAIN [None]
